FAERS Safety Report 6959253-8 (Version None)
Quarter: 2010Q3

REPORT INFORMATION
  Report Type: 
  Country: None (occurrence: None)
  Receive Date: 20100831
  Receipt Date: 20100819
  Transmission Date: 20110219
  Serious: Yes (Death, Hospitalization, Other)
  Sender: FDA-Public Use
  Company Number: BR-PFIZER INC-2010083546

PATIENT
  Age: 91 Year
  Sex: Male

DRUGS (1)
  1. VIAGRA [Suspect]
     Indication: ARRHYTHMIA
     Dosage: 50 MG, UNK
     Route: 048
     Dates: end: 20091001

REACTIONS (3)
  - ARRHYTHMIA [None]
  - ORGAN FAILURE [None]
  - PROSTATE CANCER [None]
